FAERS Safety Report 9730178 (Version 1)
Quarter: 2013Q4

REPORT INFORMATION
  Report Type: Spontaneous
  Country: US (occurrence: US)
  Receive Date: 20131204
  Receipt Date: 20131204
  Transmission Date: 20140711
  Serious: No
  Sender: FDA-Public Use
  Company Number: US-ENDO PHARMACEUTICALS INC.-APER20130003

PATIENT
  Sex: Female

DRUGS (2)
  1. ALPRAZOLAM IR TABLETS 0.5MG [Suspect]
     Indication: NERVOUSNESS
     Route: 048
  2. ALPRAZOLAM IR TABLETS 0.5MG [Suspect]
     Indication: INSOMNIA

REACTIONS (3)
  - Arthralgia [Not Recovered/Not Resolved]
  - Abdominal discomfort [Not Recovered/Not Resolved]
  - Nausea [Not Recovered/Not Resolved]
